FAERS Safety Report 7290844 (Version 8)
Quarter: 2012Q4

REPORT INFORMATION
  Report Type: Report from Study
  Country: IT (occurrence: IT)
  Receive Date: 20100223
  Receipt Date: 20121203
  Transmission Date: 20130627
  Serious: Yes (Hospitalization)
  Sender: FDA-Public Use
  Company Number: IT-ABBOTT-10P-083-0626172-01

PATIENT
  Age: 64 Year
  Sex: Female

DRUGS (3)
  1. HUMIRA [Suspect]
     Indication: CROHN^S DISEASE
     Route: 058
     Dates: start: 20080630, end: 20090109
  2. METHOTREXATE [Concomitant]
     Indication: ARTHRITIS
     Dates: start: 200404, end: 201002
  3. METHOTREXATE [Concomitant]
     Indication: CROHN^S DISEASE
     Dosage: highest dose 25mg

REACTIONS (1)
  - Crohn^s disease [Recovered/Resolved]
